FAERS Safety Report 4899002-0 (Version None)
Quarter: 2006Q1

REPORT INFORMATION
  Report Type: 
  Country: None (occurrence: None)
  Receive Date: 20060202
  Receipt Date: 20051208
  Transmission Date: 20060701
  Serious: Yes (Hospitalization)
  Sender: FDA-Public Use
  Company Number: US-MERCK-0512USA01608

PATIENT
  Age: 67 Year
  Sex: Male
  Weight: 108 kg

DRUGS (6)
  1. VIOXX [Suspect]
     Indication: ARTHRALGIA
     Route: 048
     Dates: start: 20021201, end: 20040930
  2. CLONIDINE [Concomitant]
     Route: 065
  3. LOPID [Concomitant]
     Route: 065
  4. AMITRIPTYLINE HYDROCHLORIDE [Concomitant]
     Route: 065
  5. VASOTEC [Concomitant]
     Route: 065
  6. AVANDIA [Concomitant]
     Route: 065

REACTIONS (17)
  - ACUTE PRERENAL FAILURE [None]
  - ANAEMIA POSTOPERATIVE [None]
  - ANGINA UNSTABLE [None]
  - BACK PAIN [None]
  - CARDIAC FAILURE CONGESTIVE [None]
  - CHRONIC OBSTRUCTIVE PULMONARY DISEASE [None]
  - CORONARY ARTERY DISEASE [None]
  - DEPRESSION [None]
  - DIASTOLIC DYSFUNCTION [None]
  - HYPERTENSION [None]
  - LIPIDS INCREASED [None]
  - MITRAL VALVE CALCIFICATION [None]
  - OBESITY [None]
  - PLEURAL EFFUSION [None]
  - POSTOPERATIVE THORACIC PROCEDURE COMPLICATION [None]
  - SLEEP APNOEA SYNDROME [None]
  - VENTRICULAR HYPERTROPHY [None]
